FAERS Safety Report 23144153 (Version 1)
Quarter: 2023Q4

REPORT INFORMATION
  Report Type: Spontaneous
  Country: FR (occurrence: FR)
  Receive Date: 20231103
  Receipt Date: 20231103
  Transmission Date: 20240110
  Serious: Yes (Death, Hospitalization, Other)
  Sender: FDA-Public Use
  Company Number: None

PATIENT
  Age: 81 Year
  Sex: Female
  Weight: 113 kg

DRUGS (2)
  1. ARANESP [Suspect]
     Active Substance: DARBEPOETIN ALFA
     Indication: Nephrogenic anaemia
     Dosage: 1 DOSAGE FORM
     Route: 065
     Dates: start: 20231004, end: 20231004
  2. MIRCERA [Suspect]
     Active Substance: METHOXY POLYETHYLENE GLYCOL-EPOETIN BETA
     Indication: Nephrogenic anaemia
     Dosage: 1 DOSAGE FORM
     Route: 065
     Dates: start: 20230906, end: 20230906

REACTIONS (2)
  - Drug reaction with eosinophilia and systemic symptoms [Not Recovered/Not Resolved]
  - Multiple organ dysfunction syndrome [Fatal]

NARRATIVE: CASE EVENT DATE: 20230101
